FAERS Safety Report 20474516 (Version 1)
Quarter: 2022Q1

REPORT INFORMATION
  Report Type: Report from Study
  Country: ZA (occurrence: None)
  Receive Date: 20220215
  Receipt Date: 20220215
  Transmission Date: 20220423
  Serious: Yes (Hospitalization)
  Sender: FDA-Public Use
  Company Number: 2022A069711

PATIENT
  Age: 90 Year
  Sex: Male

DRUGS (10)
  1. BUDESONIDE\FORMOTEROL [Suspect]
     Active Substance: BUDESONIDE\FORMOTEROL
     Indication: Asthma
     Dosage: 160UG/INHAL TWO TIMES A DAY
     Route: 055
  2. UROMAX [Concomitant]
     Indication: Benign prostatic hyperplasia
     Route: 048
  3. PANTOPRAZOLE SODIUM [Concomitant]
     Active Substance: PANTOPRAZOLE SODIUM
     Indication: Ulcer
     Route: 048
  4. BISOPROLOL FUMARATE [Concomitant]
     Active Substance: BISOPROLOL FUMARATE
     Indication: Hypertension
     Route: 048
  5. RAN PEARINDOPRIL [Concomitant]
     Indication: Hypertension
     Route: 048
  6. LANOXIN [Concomitant]
     Active Substance: DIGOXIN
     Indication: Cardiac disorder
     Route: 048
  7. SPIRACTIN [Concomitant]
     Indication: Drug abuse
     Route: 048
  8. WARFARIN [Concomitant]
     Active Substance: WARFARIN
     Indication: Anticoagulant therapy
     Route: 048
  9. NEULAN SA [Concomitant]
     Indication: Asthma
     Route: 048
  10. RIVOTRIL [Concomitant]
     Active Substance: CLONAZEPAM
     Indication: Anxiety
     Route: 048

REACTIONS (2)
  - Pulmonary embolism [Recovering/Resolving]
  - Pulmonary oedema [Recovering/Resolving]
